FAERS Safety Report 9160448 (Version 6)
Quarter: 2013Q2

REPORT INFORMATION
  Report Type: Report from Study
  Country: CA (occurrence: CA)
  Receive Date: 20130313
  Receipt Date: 20130619
  Transmission Date: 20140414
  Serious: Yes (Other)
  Sender: FDA-Public Use
  Company Number: CA-ROCHE-1201175

PATIENT
  Sex: Female
  Weight: 80.5 kg

DRUGS (8)
  1. AVASTIN [Suspect]
     Indication: MALIGNANT GLIOMA
     Route: 042
     Dates: start: 20130212
  2. AVASTIN [Suspect]
     Route: 042
     Dates: start: 20130410
  3. AVASTIN [Suspect]
     Route: 042
     Dates: start: 20130604, end: 20130604
  4. PREDNISONE [Suspect]
     Indication: PRODUCT USED FOR UNKNOWN INDICATION
     Dosage: DOSE DECREASING AND DISCONTINUED SINCE 01-MAY-2013
     Route: 048
     Dates: start: 20130501
  5. TEMOZOLOMIDE [Concomitant]
  6. ZANTAC [Concomitant]
  7. PROCHLORPERAZIN [Concomitant]
  8. ONDANSETRON [Concomitant]

REACTIONS (5)
  - Weight increased [Unknown]
  - Speech disorder [Unknown]
  - Balance disorder [Unknown]
  - Disease progression [Not Recovered/Not Resolved]
  - Blood pressure increased [Not Recovered/Not Resolved]
